FAERS Safety Report 9291764 (Version 1)
Quarter: 2013Q2

REPORT INFORMATION
  Report Type: Spontaneous
  Country: CN (occurrence: CN)
  Receive Date: 20130516
  Receipt Date: 20130516
  Transmission Date: 20140414
  Serious: Yes (Other)
  Sender: FDA-Public Use
  Company Number: CN-009507513-1305CHN009084

PATIENT
  Age: 4 Year
  Sex: Female

DRUGS (5)
  1. CLARITYNE [Suspect]
     Indication: HYPERSENSITIVITY
     Dosage: 5 MG, QD
     Route: 048
     Dates: start: 20111011, end: 20111015
  2. SULPERAZONE [Concomitant]
     Indication: INFLAMMATION
     Dosage: UNK
     Route: 048
     Dates: start: 20111003, end: 20111010
  3. ZITHROMAX [Concomitant]
     Indication: INFLAMMATION
     Dosage: UNK
     Route: 048
     Dates: start: 20111003, end: 20111009
  4. CALCIUM GLUCONATE [Concomitant]
     Indication: HYPERSENSITIVITY
     Dosage: UNK, BID
     Route: 048
     Dates: start: 20111003, end: 20111015
  5. ERYTHROMYCIN LACTOBIONATE [Concomitant]
     Indication: INFLAMMATION
     Dosage: 210 MG, BID
     Route: 042

REACTIONS (1)
  - Alanine aminotransferase increased [Recovered/Resolved]
